FAERS Safety Report 5143310-5 (Version None)
Quarter: 2006Q4

REPORT INFORMATION
  Report Type: 
  Country: None (occurrence: None)
  Receive Date: 20061103
  Receipt Date: 20061011
  Transmission Date: 20070319
  Serious: Yes (Hospitalization)
  Sender: FDA-Public Use
  Company Number: CZ-ROCHE-466848

PATIENT
  Age: 34 Year
  Sex: Male

DRUGS (3)
  1. DACLIZUMAB [Suspect]
     Route: 065
  2. TACROLIMUS [Suspect]
     Route: 048
     Dates: start: 20060915
  3. TACROLIMUS [Suspect]
     Route: 048

REACTIONS (2)
  - HEPATITIS C VIRUS [None]
  - LIVER TRANSPLANT REJECTION [None]
